FAERS Safety Report 5934466-2 (Version None)
Quarter: 2008Q4

REPORT INFORMATION
  Report Type: 
  Country: None (occurrence: None)
  Receive Date: 20081029
  Receipt Date: 20081022
  Transmission Date: 20090506
  Serious: Yes (Hospitalization)
  Sender: FDA-Public Use
  Company Number: CL-ABBOTT-08P-034-0482806-00

PATIENT
  Sex: Male

DRUGS (3)
  1. KALETRA [Suspect]
     Indication: HIV INFECTION
     Dosage: 800/200MG DAILY, 400/100MG TWICE DAILY400/100MG BID
     Route: 048
     Dates: start: 20080922
  2. LAMIVUDINE [Concomitant]
     Indication: HIV INFECTION
     Route: 048
     Dates: start: 20080922
  3. ABACAVIR [Concomitant]
     Indication: HIV INFECTION
     Route: 048
     Dates: start: 20080922

REACTIONS (4)
  - HEADACHE [None]
  - NAUSEA [None]
  - VISION BLURRED [None]
  - VOMITING [None]
